FAERS Safety Report 7340613-0 (Version None)
Quarter: 2011Q1

REPORT INFORMATION
  Report Type: 
  Country: None (occurrence: None)
  Receive Date: 20110309
  Receipt Date: 20110228
  Transmission Date: 20110831
  Serious: Yes (Hospitalization)
  Sender: FDA-Public Use
  Company Number: JP-JNJFOC-20110301740

PATIENT
  Sex: Male
  Weight: 70 kg

DRUGS (6)
  1. AMLODIPINE [Concomitant]
     Route: 048
  2. LIPITOR [Concomitant]
     Route: 048
  3. REMICADE [Suspect]
     Route: 042
  4. REMICADE [Suspect]
     Route: 042
  5. REMICADE [Suspect]
     Indication: BEHCET'S SYNDROME
     Route: 042
  6. ASPIRIN [Concomitant]
     Route: 048

REACTIONS (2)
  - DISSEMINATED TUBERCULOSIS [None]
  - PNEUMOCYSTIS JIROVECI PNEUMONIA [None]
